FAERS Safety Report 12362281 (Version 3)
Quarter: 2021Q4

REPORT INFORMATION
  Report Type: Spontaneous
  Country: GB (occurrence: GB)
  Receive Date: 20160512
  Receipt Date: 20211202
  Transmission Date: 20220303
  Serious: Yes (Other)
  Sender: FDA-Public Use
  Company Number: None

PATIENT
  Age: 78 Year
  Sex: Female

DRUGS (3)
  1. TOLTERODINE [Suspect]
     Active Substance: TOLTERODINE
     Indication: Bladder disorder
     Dosage: 4 MG, QD
  2. TOLTERODINE [Suspect]
     Active Substance: TOLTERODINE
     Indication: Bladder disorder
     Dosage: 2 MILLIGRAM, QD
  3. TOLTERODINE TARTRATE [Suspect]
     Active Substance: TOLTERODINE TARTRATE
     Indication: Bladder disorder
     Dosage: 2 MILLIGRAM

REACTIONS (9)
  - Gait disturbance [Recovered/Resolved]
  - Depression [Recovered/Resolved]
  - Slow speech [Recovered/Resolved]
  - Depressed mood [Recovered/Resolved]
  - Physical disability [Recovered/Resolved]
  - Dementia [Recovered/Resolved]
  - Amnesia [Recovered/Resolved]
  - Memory impairment [Recovered/Resolved]
  - Fatigue [Recovered/Resolved]
